FAERS Safety Report 7162243-6 (Version None)
Quarter: 2010Q4

REPORT INFORMATION
  Report Type: 
  Country: None (occurrence: None)
  Receive Date: 20101215
  Receipt Date: 20091002
  Transmission Date: 20110411
  Serious: Yes (Hospitalization)
  Sender: FDA-Public Use
  Company Number: US-PFIZER INC-2009208895

PATIENT
  Sex: Female
  Weight: 81.646 kg

DRUGS (4)
  1. LYRICA [Suspect]
     Indication: PAIN
     Dosage: 150 MG, 2X/DAY
     Dates: start: 20080101, end: 20090501
  2. LYRICA [Suspect]
     Indication: TEMPOROMANDIBULAR JOINT SYNDROME
  3. AMITRIPTYLINE [Concomitant]
     Indication: SLEEP DISORDER
     Dosage: UNK
  4. CYMBALTA [Concomitant]

REACTIONS (1)
  - CONVULSION [None]
